FAERS Safety Report 26200881 (Version 1)
Quarter: 2025Q4

REPORT INFORMATION
  Report Type: Report from Study
  Country: CA (occurrence: CA)
  Receive Date: 20251226
  Receipt Date: 20251226
  Transmission Date: 20260118
  Serious: Yes (Death)
  Sender: CELLTRION
  Company Number: CA-CELLTRION INC.-2024CA011152

PATIENT

DRUGS (17)
  1. ADALIMUMAB-AATY [Suspect]
     Active Substance: ADALIMUMAB-AATY
     Indication: Rheumatoid arthritis
     Dosage: 40 MG, Q2WEEKS/2 WEEKS
     Route: 058
     Dates: start: 20240507
  2. ADALIMUMAB-AATY [Suspect]
     Active Substance: ADALIMUMAB-AATY
  3. METHOTREXATE [Concomitant]
     Active Substance: METHOTREXATE
  4. SULFASALAZINE [Concomitant]
     Active Substance: SULFASALAZINE
  5. APIXABAN [Concomitant]
     Active Substance: APIXABAN
  6. VITAMIN D NOS [Concomitant]
     Active Substance: CHOLECALCIFEROL\ERGOCALCIFEROL
  7. FLECAINIDE [Concomitant]
     Active Substance: FLECAINIDE
  8. FOLIC ACID [Concomitant]
     Active Substance: FOLIC ACID
  9. CALCIUM [Concomitant]
     Active Substance: CALCIUM
  10. VITAMIN B12 [Concomitant]
     Active Substance: CYANOCOBALAMIN
  11. PANTOPRAZOLE [Concomitant]
     Active Substance: PANTOPRAZOLE
  12. BISOPROLOL [Concomitant]
     Active Substance: BISOPROLOL
  13. MINERALS\VITAMINS [Concomitant]
     Active Substance: MINERALS\VITAMINS
  14. VITAMIN B1 [Concomitant]
     Active Substance: THIAMINE HYDROCHLORIDE
  15. ZOPICLONE [Concomitant]
     Active Substance: ZOPICLONE
  16. ATIVAN [Concomitant]
     Active Substance: LORAZEPAM
  17. SYMBICORT [Concomitant]
     Active Substance: BUDESONIDE\FORMOTEROL FUMARATE DIHYDRATE

REACTIONS (3)
  - Death [Fatal]
  - Fatigue [Recovered/Resolved]
  - Arthralgia [Recovered/Resolved]

NARRATIVE: CASE EVENT DATE: 20240507
